FAERS Safety Report 7798334-6 (Version None)
Quarter: 2011Q4

REPORT INFORMATION
  Report Type: 
  Country: None (occurrence: None)
  Receive Date: 20111005
  Receipt Date: 20110923
  Transmission Date: 20120403
  Serious: Yes (Other)
  Sender: FDA-Public Use
  Company Number: US-ELI_LILLY_AND_COMPANY-US201109007792

PATIENT
  Sex: Male

DRUGS (3)
  1. HUMALOG MIX 75/25 [Suspect]
     Dosage: 25 U, EACH EVENING
  2. HUMULIN N [Suspect]
  3. HUMALOG MIX 75/25 [Suspect]
     Indication: BLOOD GLUCOSE FLUCTUATION
     Dosage: 35 U, EACH MORNING

REACTIONS (4)
  - INCORRECT DOSE ADMINISTERED [None]
  - BLINDNESS UNILATERAL [None]
  - VASCULAR OCCLUSION [None]
  - VISUAL IMPAIRMENT [None]
